FAERS Safety Report 9149124 (Version 1)
Quarter: 2013Q1

REPORT INFORMATION
  Report Type: Spontaneous
  Country: US (occurrence: US)
  Receive Date: 20130308
  Receipt Date: 20130308
  Transmission Date: 20140127
  Serious: No
  Sender: FDA-Public Use
  Company Number: US-ENDO PHARMACEUTICALS INC.-OPCR20121743

PATIENT
  Age: 50 None
  Sex: Male

DRUGS (2)
  1. OPANA ER 20MG [Suspect]
     Indication: BACK PAIN
     Route: 048
     Dates: start: 201206
  2. OXYCODONE HCL [Concomitant]
     Indication: BREAKTHROUGH PAIN
     Dosage: ONLY TO TAKE FOUR PER DAY
     Route: 048

REACTIONS (10)
  - Migraine [Not Recovered/Not Resolved]
  - Thinking abnormal [Not Recovered/Not Resolved]
  - Muscular weakness [Recovered/Resolved]
  - Fall [Recovered/Resolved]
  - Back injury [Not Recovered/Not Resolved]
  - Fatigue [Not Recovered/Not Resolved]
  - Headache [Not Recovered/Not Resolved]
  - Somnolence [Not Recovered/Not Resolved]
  - Abdominal discomfort [Not Recovered/Not Resolved]
  - Drug effect decreased [Not Recovered/Not Resolved]
